FAERS Safety Report 7483730-7 (Version None)
Quarter: 2011Q2

REPORT INFORMATION
  Report Type: 
  Country: None (occurrence: None)
  Receive Date: 20110517
  Receipt Date: 20110503
  Transmission Date: 20111010
  Serious: Yes (Other)
  Sender: FDA-Public Use
  Company Number: PHHY2011US10694

PATIENT
  Sex: Female
  Weight: 58.503 kg

DRUGS (13)
  1. RECLAST [Suspect]
     Indication: OSTEOPOROSIS
     Dosage: 5 MG
     Route: 042
  2. BETA BLOCKING AGENTS [Concomitant]
  3. NASALCROM [Concomitant]
  4. PREVACID [Concomitant]
  5. ESTRACE [Concomitant]
  6. XANAX [Concomitant]
  7. VITAMIN D [Concomitant]
  8. CALCIUM [Concomitant]
  9. LOVAZA [Concomitant]
  10. ASPIRIN [Concomitant]
  11. GLUCOSAMINE [Concomitant]
  12. ATENOLOL [Concomitant]
  13. PEPCID [Concomitant]

REACTIONS (6)
  - ARRHYTHMIA [None]
  - HEADACHE [None]
  - EXTRASYSTOLES [None]
  - PALPITATIONS [None]
  - BLOOD PRESSURE INCREASED [None]
  - TACHYCARDIA [None]
